FAERS Safety Report 18904062 (Version 1)
Quarter: 2021Q1

REPORT INFORMATION
  Report Type: Spontaneous
  Country: US (occurrence: US)
  Receive Date: 20210217
  Receipt Date: 20210217
  Transmission Date: 20210420
  Serious: Yes (Hospitalization)
  Sender: FDA-Public Use
  Company Number: None

PATIENT
  Age: 71 Year
  Sex: Male
  Weight: 102 kg

DRUGS (2)
  1. CARBOPLATIN 324MG [Suspect]
     Active Substance: CARBOPLATIN
     Dates: end: 20190929
  2. TOPOTECAN 3.46MG [Suspect]
     Active Substance: TOPOTECAN HYDROCHLORIDE
     Dates: end: 20190929

REACTIONS (1)
  - Sepsis [None]

NARRATIVE: CASE EVENT DATE: 20191015
